FAERS Safety Report 17409854 (Version 1)
Quarter: 2020Q1

REPORT INFORMATION
  Report Type: Spontaneous
  Country: FR (occurrence: FR)
  Receive Date: 20200212
  Receipt Date: 20200212
  Transmission Date: 20200409
  Serious: Yes (Hospitalization)
  Sender: FDA-Public Use
  Company Number: FR-GILEAD-2020-0450735

PATIENT
  Age: 55 Year
  Sex: Female
  Weight: 55 kg

DRUGS (18)
  1. OMEPRAZOLE. [Concomitant]
     Active Substance: OMEPRAZOLE
  2. VERSATIS [Concomitant]
     Active Substance: LIDOCAINE
     Dosage: 5 %, EMPL?TRE M?DICAMENTEUX
  3. KARDEGIC [Concomitant]
     Active Substance: ASPIRIN DL-LYSINE
     Dosage: 160 MG, POUDRE POUR SOLUTION BUVABLE EN SACHET
  4. IPRATROPIUM BROMIDE. [Concomitant]
     Active Substance: IPRATROPIUM BROMIDE
  5. DIFFU K [Concomitant]
     Active Substance: POTASSIUM CHLORIDE
  6. ELIQUIS [Concomitant]
     Active Substance: APIXABAN
     Dosage: 5 MG COMPRIM? PELLICUL?
  7. NICOPATCH [Concomitant]
     Active Substance: NICOTINE
  8. LASILIX [FUROSEMIDE] [Concomitant]
     Active Substance: FUROSEMIDE
     Dosage: 40 MG, COMPRIM? S?CABLE
  9. IPRATROPIUM BROMIDE\FENOTEROL HYDROBROMIDE [Concomitant]
     Active Substance: FENOTEROL HYDROBROMIDE\IPRATROPIUM BROMIDE
  10. ULTIBRO BREEZHALER [Concomitant]
     Active Substance: GLYCOPYRRONIUM\INDACATEROL
  11. BIKTARVY [Suspect]
     Active Substance: BICTEGRAVIR SODIUM\EMTRICITABINE\TENOFOVIR ALAFENAMIDE FUMARATE
     Indication: HIV INFECTION
     Dosage: 1 DOSAGE FORM, QD
     Route: 048
     Dates: start: 201911, end: 201912
  12. CACIT VITAMINE D3 [Concomitant]
     Active Substance: CALCIUM CARBONATE\CHOLECALCIFEROL
  13. SERESTA [Concomitant]
     Active Substance: OXAZEPAM
     Dosage: 50 MG, COMPRIM? S?CABLE
  14. BUPRENORPHINE. [Concomitant]
     Active Substance: BUPRENORPHINE
  15. TERBUTALINE [Concomitant]
     Active Substance: TERBUTALINE
  16. GABAPENTINE [Concomitant]
     Active Substance: GABAPENTIN
  17. PARACETAMOL [Concomitant]
     Active Substance: ACETAMINOPHEN
  18. BISOCE [Concomitant]
     Active Substance: BISOPROLOL
     Dosage: 2.5 MG, COMPRIM? PELLICUL? S?CABLE

REACTIONS (1)
  - Erythema nodosum [Recovering/Resolving]

NARRATIVE: CASE EVENT DATE: 20191220
